FAERS Safety Report 14165928 (Version 2)
Quarter: 2017Q4

REPORT INFORMATION
  Report Type: Report from Study
  Country: GB (occurrence: GB)
  Receive Date: 20171107
  Receipt Date: 20171108
  Transmission Date: 20180321
  Serious: Yes (Death)
  Sender: FDA-Public Use
  Company Number: GB-JNJFOC-20170525237

PATIENT
  Age: 66 Year
  Sex: Female
  Weight: 56 kg

DRUGS (9)
  1. THIAMINE HYDROCHLORIDE. [Concomitant]
     Active Substance: THIAMINE HYDROCHLORIDE
     Route: 065
     Dates: start: 20100715
  2. OMEPRAZOLE. [Concomitant]
     Active Substance: OMEPRAZOLE
     Route: 065
     Dates: start: 20100715
  3. STELARA [Suspect]
     Active Substance: USTEKINUMAB
     Indication: PSORIASIS
     Route: 058
     Dates: start: 20150203
  4. HYDROXYCARBAMIDE [Concomitant]
     Active Substance: HYDROXYUREA
     Route: 065
     Dates: start: 20160902
  5. LEVEMIR [Concomitant]
     Active Substance: INSULIN DETEMIR
     Route: 065
     Dates: start: 20140901
  6. FERROUS SULFATE. [Concomitant]
     Active Substance: FERROUS SULFATE
     Route: 065
     Dates: start: 20100715
  7. CREON [Concomitant]
     Active Substance: PANCRELIPASE AMYLASE\PANCRELIPASE LIPASE\PANCRELIPASE PROTEASE
     Route: 065
     Dates: start: 20100715
  8. ATORVASTATIN [Concomitant]
     Active Substance: ATORVASTATIN
     Route: 065
     Dates: start: 20150601
  9. QUETIAPINE. [Concomitant]
     Active Substance: QUETIAPINE
     Route: 065
     Dates: start: 20150612

REACTIONS (4)
  - Pneumonia aspiration [Fatal]
  - Hepatic cirrhosis [Fatal]
  - Completed suicide [Fatal]
  - Hepatic steatosis [Fatal]

NARRATIVE: CASE EVENT DATE: 20170519
